FAERS Safety Report 17273099 (Version 2)
Quarter: 2020Q1

REPORT INFORMATION
  Report Type: Spontaneous
  Country: FR (occurrence: FR)
  Receive Date: 20200115
  Receipt Date: 20200116
  Transmission Date: 20200409
  Serious: Yes (Hospitalization)
  Sender: FDA-Public Use
  Company Number: FR-MYLANLABS-2020M1003997

PATIENT
  Age: 85 Year
  Sex: Male
  Weight: 70 kg

DRUGS (9)
  1. XATRAL                             /00975302/ [Suspect]
     Active Substance: ALFUZOSIN HYDROCHLORIDE
     Indication: URINARY RETENTION
     Dosage: 10 MILLIGRAM, QD, 0-0-1
     Route: 048
     Dates: start: 20190911
  2. ASPEGIC                            /00002701/ [Concomitant]
     Active Substance: ASPIRIN
     Indication: CARDIAC FAILURE
     Dosage: 100 MILLIGRAM, QD, 0-1-0
     Route: 048
     Dates: end: 20190915
  3. SERESTA [Concomitant]
     Active Substance: OXAZEPAM
     Indication: ANXIETY
     Dosage: 10 MILLIGRAM, QD, 0-0-1
     Route: 048
     Dates: end: 20190915
  4. HYDROCORTISONE ROUSSEL             /00028601/ [Concomitant]
     Active Substance: HYDROCORTISONE
     Indication: ADRENAL INSUFFICIENCY
     Dosage: 60 MILLIGRAM, QD, 4-2-0
     Route: 048
  5. LEVOTHYROX [Concomitant]
     Active Substance: LEVOTHYROXINE
     Indication: HYPOTHYROIDISM
     Dosage: 100 MICROGRAM, QD, 1-0-0
     Route: 048
  6. PANTOPRAZOLE MYLAN 20 MG, COMPRIM? GASTRO-R?SISTANT [Suspect]
     Active Substance: PANTOPRAZOLE SODIUM
     Indication: PROPHYLAXIS AGAINST GASTROINTESTINAL ULCER
     Dosage: 20 MILLIGRAM, QD, 1-0-0
     Route: 048
     Dates: start: 20190910, end: 20191003
  7. LOVENOX [Suspect]
     Active Substance: ENOXAPARIN SODIUM
     Indication: THROMBOSIS PROPHYLAXIS
     Dosage: 4000 INTERNATIONAL UNIT, QD, 0-0-1
     Route: 058
     Dates: start: 20190911, end: 20191004
  8. AUGMENTIN [Suspect]
     Active Substance: AMOXICILLIN\CLAVULANATE POTASSIUM
     Indication: PNEUMONIA ASPIRATION
     Dosage: 3 DOSAGE FORM, QD, 1-1-1
     Route: 048
     Dates: start: 20190912, end: 20190916
  9. FINASTERIDE ACCORD [Suspect]
     Active Substance: FINASTERIDE
     Indication: URINARY RETENTION
     Dosage: 5 MILLIGRAM, QD, 1-0-0
     Route: 048
     Dates: start: 20190912, end: 20190916

REACTIONS (3)
  - Cholestasis [Recovered/Resolved]
  - Hepatitis acute [Recovered/Resolved]
  - Hepatitis [Recovered/Resolved]

NARRATIVE: CASE EVENT DATE: 20190916
